FAERS Safety Report 17846687 (Version 1)
Quarter: 2020Q2

REPORT INFORMATION
  Report Type: Report from Study
  Country: CA (occurrence: CA)
  Receive Date: 20200601
  Receipt Date: 20200601
  Transmission Date: 20200714
  Serious: Yes (Hospitalization)
  Sender: FDA-Public Use
  Company Number: CA-TAKEDA-2020TUS023904

PATIENT
  Age: 89 Year
  Sex: Female

DRUGS (4)
  1. PENTASA [Concomitant]
     Active Substance: MESALAMINE
     Dosage: 1 GRAM, QD
     Dates: start: 20171227
  2. VEDOLIZUMAB [Suspect]
     Active Substance: VEDOLIZUMAB
     Indication: COLITIS ULCERATIVE
     Dosage: 300 MILLIGRAM
     Route: 042
     Dates: start: 20180111
  3. PENTASA [Concomitant]
     Active Substance: MESALAMINE
     Dosage: 2 GRAM, QD
     Dates: start: 20171206
  4. PREDNISONE. [Concomitant]
     Active Substance: PREDNISONE
     Dosage: UNK
     Dates: start: 20171206

REACTIONS (1)
  - Pleural effusion [Not Recovered/Not Resolved]
